FAERS Safety Report 17413274 (Version 1)
Quarter: 2020Q1

REPORT INFORMATION
  Report Type: Spontaneous
  Country: US (occurrence: US)
  Receive Date: 20200213
  Receipt Date: 20200213
  Transmission Date: 20200409
  Serious: No
  Sender: FDA-Public Use
  Company Number: US-GLAXOSMITHKLINE-US2020022600

PATIENT
  Sex: Male

DRUGS (1)
  1. FLONASE [Suspect]
     Active Substance: FLUTICASONE PROPIONATE
     Indication: HYPERSENSITIVITY
     Dosage: UNK UNK, 1D (3 SPAYS IN MY NOSTRIL )
     Route: 065
     Dates: start: 20200207

REACTIONS (1)
  - Wrong dose [Unknown]

NARRATIVE: CASE EVENT DATE: 20200207
